FAERS Safety Report 4918925-7 (Version None)
Quarter: 2006Q1

REPORT INFORMATION
  Report Type: 
  Country: None (occurrence: None)
  Receive Date: 20060216
  Receipt Date: 20060202
  Transmission Date: 20060701
  Serious: Yes (Hospitalization)
  Sender: FDA-Public Use
  Company Number: 2005US001405

PATIENT
  Age: 25 Year
  Sex: Male
  Weight: 94.3 kg

DRUGS (2)
  1. PROGRAF [Suspect]
     Indication: PROPHYLAXIS AGAINST TRANSPLANT REJECTION
     Dosage: 2.00 MG, BID, ORAL
     Route: 048
     Dates: start: 20050914
  2. TEQUIN [Concomitant]

REACTIONS (2)
  - BLOOD CREATININE INCREASED [None]
  - ORCHITIS [None]
